FAERS Safety Report 4462881-5 (Version None)
Quarter: 2004Q3

REPORT INFORMATION
  Report Type: 
  Country: None (occurrence: None)
  Receive Date: 20040927
  Receipt Date: 20040916
  Transmission Date: 20050211
  Serious: Yes (Hospitalization)
  Sender: FDA-Public Use
  Company Number: OMPQ-NO-0409S-1200

PATIENT
  Age: 60 Year
  Sex: Male

DRUGS (9)
  1. OMNIPAQUE 180 [Suspect]
     Indication: CALCULUS URETERIC
     Dosage: 40 ML, SINGLE DOSE, I.V.
     Route: 042
     Dates: start: 20040906, end: 20040906
  2. MEXILETINE HYDROCHLORIDE (MEXITIL) [Concomitant]
  3. DOMPERIDONE (NAUZELIN) [Concomitant]
  4. CLOTIAZEPAM (RIZE) [Concomitant]
  5. APRINDINE HYDROCHLORIDE (ASPENON) [Concomitant]
  6. BENIDIPINE HYDROCHLORIDE (CONIEL) [Concomitant]
  7. PROBENECID (BENECID) [Concomitant]
  8. ESTAZOLAM [Concomitant]
  9. IMIPRAMINE HCL [Concomitant]

REACTIONS (9)
  - ASTHENIA [None]
  - BLOOD PRESSURE DIASTOLIC INCREASED [None]
  - BODY TEMPERATURE DECREASED [None]
  - DEPRESSED LEVEL OF CONSCIOUSNESS [None]
  - DYSSTASIA [None]
  - GRIP STRENGTH DECREASED [None]
  - HEADACHE [None]
  - MUSCULAR WEAKNESS [None]
  - SOMNOLENCE [None]
